FAERS Safety Report 16057874 (Version 1)
Quarter: 2019Q1

REPORT INFORMATION
  Report Type: Spontaneous
  Country: US (occurrence: US)
  Receive Date: 20190311
  Receipt Date: 20190311
  Transmission Date: 20190418
  Serious: No
  Sender: FDA-Public Use
  Company Number: US-TEVA-2019-US-1014329

PATIENT
  Sex: Male

DRUGS (1)
  1. ALPRAZOLAM XR ACTAVIS [Suspect]
     Active Substance: ALPRAZOLAM

REACTIONS (1)
  - Drug ineffective [Unknown]
